FAERS Safety Report 12385368 (Version 2)
Quarter: 2016Q2

REPORT INFORMATION
  Report Type: Spontaneous
  Country: None (occurrence: US)
  Receive Date: 20160519
  Receipt Date: 20160624
  Transmission Date: 20160815
  Serious: No
  Sender: FDA-Public Use
  Company Number: US-MEDAC PHARMA, INC.-1052465

PATIENT
  Age: 62 Year
  Sex: Male
  Weight: 81.82 kg

DRUGS (14)
  1. ROPINIROLE HYDROCHLORIDE. [Concomitant]
     Active Substance: ROPINIROLE HYDROCHLORIDE
  2. MULTI-VITAMIN [Concomitant]
     Active Substance: .ALPHA.-TOCOPHEROL ACETATE, DL-\ASCORBIC ACID\CYANOCOBALAMIN\FLUORIDE ION\FOLIC ACID\NIACIN\PYRIDOXINE\RIBOFLAVIN\THIAMINE\VITAMIN A\VITAMIN D
  3. KRILL OIL [Concomitant]
     Active Substance: DIETARY SUPPLEMENT
  4. NAC [Concomitant]
  5. FOLPLEX [Concomitant]
     Active Substance: CHOLECALCIFEROL\CYANOCOBALAMIN CO-57\FOLIC ACID\PYRIDOXINE HYDROCHLORIDE
  6. CELEBREX [Concomitant]
     Active Substance: CELECOXIB
  7. MELATONIN [Concomitant]
     Active Substance: MELATONIN
  8. ESCITALOPRAM [Concomitant]
     Active Substance: ESCITALOPRAM OXALATE
  9. BI-FLEX OSTEO [Concomitant]
  10. FINASTERIDE. [Concomitant]
     Active Substance: FINASTERIDE
  11. RASUVO [Suspect]
     Active Substance: METHOTREXATE SODIUM
     Indication: RHEUMATOID ARTHRITIS
     Route: 058
     Dates: start: 20160401
  12. VITAMIN D3DIETARY SUPPLEMEN DIETARY SUPPLEMENT [Concomitant]
     Active Substance: ALPHA-TOCOPHEROL\CHOLECALCIFEROL
  13. FIBER CAPS [Concomitant]
     Active Substance: CALCIUM POLYCARBOPHIL
  14. ONCOPLEX [Concomitant]

REACTIONS (5)
  - Accidental exposure to product [Recovering/Resolving]
  - Rheumatoid arthritis [Recovering/Resolving]
  - Device issue [Recovering/Resolving]
  - Drug dose omission [Recovering/Resolving]
  - Muscle spasms [Recovering/Resolving]

NARRATIVE: CASE EVENT DATE: 20160423
